FAERS Safety Report 17198916 (Version 1)
Quarter: 2019Q4

REPORT INFORMATION
  Report Type: Report from Study
  Country: BR (occurrence: BR)
  Receive Date: 20191225
  Receipt Date: 20191225
  Transmission Date: 20200122
  Serious: Yes (Other)
  Sender: FDA-Public Use
  Company Number: NVSC2019BR076725

PATIENT
  Age: 73 Year
  Sex: Female

DRUGS (7)
  1. LETROZOLE. [Suspect]
     Active Substance: LETROZOLE
     Indication: PRODUCT USED FOR UNKNOWN INDICATION
     Dosage: UNK
     Route: 065
  2. TAMOXIFEN [Suspect]
     Active Substance: TAMOXIFEN
     Indication: BREAST CANCER
     Dosage: UNK
     Route: 065
     Dates: start: 1999
  3. XGEVA [Concomitant]
     Active Substance: DENOSUMAB
     Indication: PRODUCT USED FOR UNKNOWN INDICATION
     Dosage: UNK
     Route: 065
  4. ACICLOVIR [Suspect]
     Active Substance: ACYCLOVIR
     Indication: HERPES VIRUS INFECTION
     Dosage: 400 MG
     Route: 065
  5. DICLOFENAC SODIUM. [Suspect]
     Active Substance: DICLOFENAC SODIUM
     Indication: PRODUCT USED FOR UNKNOWN INDICATION
     Dosage: UNK
     Route: 065
  6. KISQALI [Suspect]
     Active Substance: RIBOCICLIB
     Indication: BREAST CANCER
     Dosage: 3 DF, QD
     Route: 065
  7. CEFALEXIN [Suspect]
     Active Substance: CEPHALEXIN
     Indication: PRODUCT USED FOR UNKNOWN INDICATION
     Dosage: UNK
     Route: 065

REACTIONS (27)
  - Nephrolithiasis [Unknown]
  - Influenza [Unknown]
  - Balance disorder [Unknown]
  - Headache [Unknown]
  - Diarrhoea [Unknown]
  - Adrenal mass [Unknown]
  - Memory impairment [Unknown]
  - Diverticulum [Unknown]
  - Axillary pain [Unknown]
  - Pain [Unknown]
  - Decreased immune responsiveness [Unknown]
  - Metastases to central nervous system [Unknown]
  - Urinary incontinence [Unknown]
  - Erythema [Unknown]
  - Arthralgia [Unknown]
  - Bone pain [Unknown]
  - Anaemia [Unknown]
  - Paraneoplastic syndrome [Unknown]
  - Nausea [Recovered/Resolved]
  - Malaise [Recovered/Resolved]
  - Myalgia [Unknown]
  - Fatigue [Unknown]
  - Herpes virus infection [Unknown]
  - Metastases to bone [Unknown]
  - Dysphonia [Unknown]
  - Cough [Unknown]
  - Dizziness [Unknown]

NARRATIVE: CASE EVENT DATE: 201911
